FAERS Safety Report 4485272-X (Version None)
Quarter: 2004Q4

REPORT INFORMATION
  Report Type: 
  Country: None (occurrence: None)
  Receive Date: 20041022
  Receipt Date: 20041022
  Transmission Date: 20050328
  Serious: Yes (Death)
  Sender: FDA-Public Use
  Company Number: None

PATIENT
  Age: 77 Year
  Sex: Female
  Weight: 61.2356 kg

DRUGS (12)
  1. VIOXX [Suspect]
     Indication: ARTHRITIS
     Dosage: 25 MG QD ORAL
     Route: 048
     Dates: start: 20030414, end: 20030609
  2. CPAP [Concomitant]
  3. EFFEXOR [Concomitant]
  4. LORAZEPAM [Concomitant]
  5. CELEBREX [Concomitant]
  6. NIFEDICAL [Concomitant]
  7. PREMARIN [Concomitant]
  8. LEVAQUIN [Concomitant]
  9. OXYCODONE [Concomitant]
  10. PROMETHAZINE [Concomitant]
  11. SULINDAC [Concomitant]
  12. PREDNISONE [Concomitant]

REACTIONS (4)
  - CARDIAC TAMPONADE [None]
  - CHEST PAIN [None]
  - MYOCARDIAL RUPTURE [None]
  - SUDDEN DEATH [None]
